FAERS Safety Report 9307069 (Version 2)
Quarter: 2013Q3

REPORT INFORMATION
  Report Type: Report from Study
  Country: US (occurrence: US)
  Receive Date: 20130523
  Receipt Date: 20130701
  Transmission Date: 20140515
  Serious: Yes (Other)
  Sender: FDA-Public Use
  Company Number: US-ELI_LILLY_AND_COMPANY-US201304007124

PATIENT
  Sex: Female

DRUGS (22)
  1. TERIPARATIDE [Suspect]
     Indication: OSTEOPOROSIS POSTMENOPAUSAL
     Dosage: UNK, QD
     Dates: start: 201303, end: 201303
  2. TERIPARATIDE [Suspect]
     Dosage: UNK, QD
     Dates: start: 20130308
  3. TERIPARATIDE [Suspect]
     Dosage: 20 UG, QD
     Route: 058
     Dates: start: 20130220, end: 20130609
  4. TYLENOL                                 /SCH/ [Concomitant]
     Indication: PAIN
  5. ASPIRIN [Concomitant]
  6. ALBUTEROL [Concomitant]
  7. FLOVENT [Concomitant]
  8. SPIRIVA                                 /GFR/ [Concomitant]
  9. POTASSIUM [Concomitant]
  10. LASIX [Concomitant]
  11. ZANTAC [Concomitant]
  12. PROZAC [Concomitant]
  13. NORVASC [Concomitant]
  14. PLAVIX [Concomitant]
  15. VYTORIN [Concomitant]
  16. SINGULAIR                               /SCH/ [Concomitant]
  17. XANAX [Concomitant]
  18. NYSTATIN [Concomitant]
  19. VITAMIN C [Concomitant]
  20. CALCIUM [Concomitant]
  21. COENZYME Q10 [Concomitant]
  22. B COMPLEX [Concomitant]

REACTIONS (10)
  - Renal artery stenosis [Unknown]
  - Mammogram abnormal [Unknown]
  - Vitamin D decreased [Unknown]
  - Pain in extremity [Not Recovered/Not Resolved]
  - Injection site bruising [Unknown]
  - Pain [Not Recovered/Not Resolved]
  - Arthralgia [Unknown]
  - Headache [Unknown]
  - Bone pain [Not Recovered/Not Resolved]
  - Nausea [Unknown]
